FAERS Safety Report 13251198 (Version 1)
Quarter: 2017Q1

REPORT INFORMATION
  Report Type: Report from Study
  Country: None (occurrence: UY)
  Receive Date: 20170220
  Receipt Date: 20170220
  Transmission Date: 20170428
  Serious: Yes (Hospitalization)
  Sender: FDA-Public Use
  Company Number: UY-ABBVIE-17K-168-1870420-00

PATIENT
  Age: 63 Year
  Sex: Female

DRUGS (1)
  1. HUMIRA [Suspect]
     Active Substance: ADALIMUMAB
     Indication: RHEUMATOID ARTHRITIS
     Route: 058
     Dates: start: 20130805, end: 20170111

REACTIONS (6)
  - Cough [Unknown]
  - Respiratory tract infection [Not Recovered/Not Resolved]
  - Pyrexia [Unknown]
  - Lung disorder [Unknown]
  - Vomiting [Unknown]
  - Diarrhoea [Unknown]

NARRATIVE: CASE EVENT DATE: 20170120
